FAERS Safety Report 16368103 (Version 1)
Quarter: 2019Q2

REPORT INFORMATION
  Report Type: Spontaneous
  Country: CN (occurrence: CN)
  Receive Date: 20190529
  Receipt Date: 20190529
  Transmission Date: 20190711
  Serious: Yes (Hospitalization)
  Sender: FDA-Public Use
  Company Number: CN-PFIZER INC-2019221175

PATIENT
  Age: 55 Year
  Sex: Female

DRUGS (6)
  1. LIPITOR [Suspect]
     Active Substance: ATORVASTATIN CALCIUM
     Indication: ARTERIOSCLEROSIS
     Dosage: 20 MG, 1X/DAY
     Route: 048
     Dates: start: 20190514, end: 20190516
  2. XUESAITONG [Suspect]
     Active Substance: PANAX NOTOGINSENG ROOT
     Indication: CARDIOVASCULAR DISORDER
     Dosage: 0.4 G, 1X/DAY
     Route: 041
     Dates: start: 20190511, end: 20190515
  3. CLOPIDOGREL SULFATE [Suspect]
     Active Substance: CLOPIDOGREL BISULFATE
     Indication: ANTIPLATELET THERAPY
     Dosage: 75 MG, 1X/DAY
     Route: 048
     Dates: start: 20190514, end: 20190516
  4. BAO YI TIAN [Suspect]
     Active Substance: NIMODIPINE
     Indication: CEREBROVASCULAR DISORDER
     Dosage: 30 MG, 3X/DAY
     Route: 048
     Dates: start: 20190511, end: 20190516
  5. LIPITOR [Suspect]
     Active Substance: ATORVASTATIN CALCIUM
     Indication: LIPIDS INCREASED
  6. SODIUM CHLORIDE. [Concomitant]
     Active Substance: SODIUM CHLORIDE
     Indication: VEHICLE SOLUTION USE
     Dosage: 250 ML, 1X/DAY
     Route: 041
     Dates: start: 20190511, end: 20190515

REACTIONS (1)
  - Drug eruption [Recovering/Resolving]

NARRATIVE: CASE EVENT DATE: 20190514
